FAERS Safety Report 9322575 (Version 1)
Quarter: 2013Q2

REPORT INFORMATION
  Report Type: Spontaneous
  Country: FR (occurrence: FR)
  Receive Date: 20130531
  Receipt Date: 20130531
  Transmission Date: 20140414
  Serious: Yes (Other)
  Sender: FDA-Public Use
  Company Number: FR-ASTRAZENECA-2013SE37914

PATIENT
  Age: 61 Year
  Sex: Female

DRUGS (2)
  1. ARIMIDEX [Suspect]
     Indication: BREAST CANCER
     Route: 048
     Dates: start: 201011, end: 20130311
  2. LEVOTHYROX [Concomitant]

REACTIONS (1)
  - Tooth loss [Not Recovered/Not Resolved]
